FAERS Safety Report 9863809 (Version 3)
Quarter: 2015Q1

REPORT INFORMATION
  Report Type: Spontaneous
  Country: US (occurrence: US)
  Receive Date: 20140203
  Receipt Date: 20150205
  Transmission Date: 20150721
  Serious: Yes (Other)
  Sender: FDA-Public Use
  Company Number: US-GLAXOSMITHKLINE-A1032715A

PATIENT
  Sex: Female

DRUGS (4)
  1. GLUCOTROL XL [Concomitant]
     Active Substance: GLIPIZIDE
     Indication: PRODUCT USED FOR UNKNOWN INDICATION
     Dosage: 10 MG, UNK
  2. PIROXICAM. [Concomitant]
     Active Substance: PIROXICAM
     Dosage: 10 MG, QD
  3. AVANDIA [Suspect]
     Active Substance: ROSIGLITAZONE MALEATE
     Indication: DIABETES MELLITUS
     Route: 048
     Dates: start: 20010416, end: 20101102
  4. LEVOTHYROXINE [Concomitant]
     Active Substance: LEVOTHYROXINE
     Indication: PRODUCT USED FOR UNKNOWN INDICATION
     Dosage: UNK

REACTIONS (8)
  - Angina pectoris [Unknown]
  - Cystitis [Unknown]
  - Bone density decreased [Unknown]
  - Cystoid macular oedema [Unknown]
  - Myocardial ischaemia [Unknown]
  - Pulmonary hypertension [Unknown]
  - Cardiac failure congestive [Unknown]
  - Ischaemia [Unknown]

NARRATIVE: CASE EVENT DATE: 2004
